FAERS Safety Report 14885687 (Version 1)
Quarter: 2018Q2

REPORT INFORMATION
  Report Type: Spontaneous
  Country: US (occurrence: US)
  Receive Date: 20180511
  Receipt Date: 20180511
  Transmission Date: 20180711
  Serious: Yes (Death)
  Sender: FDA-Public Use
  Company Number: US-VIFOR (INTERNATIONAL) INC.-VIT-2018-04256

PATIENT
  Age: 65 Year
  Sex: Male

DRUGS (3)
  1. VELTASSA [Suspect]
     Active Substance: PATIROMER
     Dosage: TWO DOSES
     Route: 065
     Dates: start: 20180426
  2. VELTASSA [Suspect]
     Active Substance: PATIROMER
     Indication: BLOOD POTASSIUM INCREASED
     Dosage: ONE DOSE
     Route: 065
     Dates: start: 20180425
  3. VELTASSA [Suspect]
     Active Substance: PATIROMER
     Dosage: ONE DOSE
     Route: 065
     Dates: start: 20180427, end: 20180427

REACTIONS (1)
  - Cardiac arrest [Fatal]

NARRATIVE: CASE EVENT DATE: 20180428
